FAERS Safety Report 8124904-1 (Version None)
Quarter: 2012Q1

REPORT INFORMATION
  Report Type: 
  Country: None (occurrence: None)
  Receive Date: 20120209
  Receipt Date: 20120201
  Transmission Date: 20120608
  Serious: Yes (Other)
  Sender: FDA-Public Use
  Company Number: US-PFIZER INC-2012026091

PATIENT
  Age: 67 Year
  Sex: Male

DRUGS (5)
  1. LANTUS [Suspect]
     Dosage: 10 IU, UNK
     Route: 058
     Dates: start: 20111101, end: 20111101
  2. LANTUS [Suspect]
     Indication: DIABETES MELLITUS
     Dosage: 15 IU, 1X/DAY (PARENTERAL INJECTION,SOLUTION 100 INTERNATIONAL UNIT(S) MILLILITRE (100IU/ML)
     Route: 058
     Dates: start: 20111101, end: 20111101
  3. LANTUS [Suspect]
     Dosage: 5 IU, DAILY
     Route: 058
     Dates: start: 20111101
  4. METFORMIN HCL [Suspect]
     Dosage: UNK, 2X/DAY
  5. GLIPIZIDE [Suspect]
     Indication: DIABETES MELLITUS
     Dosage: UNK, 2X/DAY

REACTIONS (3)
  - DIABETES MELLITUS INADEQUATE CONTROL [None]
  - BLOOD GLUCOSE INCREASED [None]
  - INJECTION SITE HAEMATOMA [None]
